FAERS Safety Report 7482231-X (Version None)
Quarter: 2011Q2

REPORT INFORMATION
  Report Type: 
  Country: None (occurrence: None)
  Receive Date: 20110516
  Receipt Date: 20110506
  Transmission Date: 20111010
  Serious: No
  Sender: FDA-Public Use
  Company Number: US-PFIZER INC-2011098156

PATIENT
  Sex: Male
  Weight: 99.773 kg

DRUGS (1)
  1. VIAGRA [Suspect]
     Indication: OFF LABEL USE
     Dosage: 200 MG, UNK
     Route: 048
     Dates: start: 20110506

REACTIONS (4)
  - INTENTIONAL DRUG MISUSE [None]
  - PENIS DISORDER [None]
  - GENITAL PAIN [None]
  - PENILE SWELLING [None]
